FAERS Safety Report 8000844-3 (Version None)
Quarter: 2011Q4

REPORT INFORMATION
  Report Type: 
  Country: None (occurrence: None)
  Receive Date: 20111219
  Receipt Date: 20111209
  Transmission Date: 20120403
  Serious: Yes (Hospitalization, Other)
  Sender: FDA-Public Use
  Company Number: 2011MA007135

PATIENT
  Sex: Female
  Weight: 77.1115 kg

DRUGS (29)
  1. PEPCID [Concomitant]
  2. PROTONIX [Concomitant]
  3. DARVOCET [Concomitant]
  4. AMBIEN [Concomitant]
  5. LIDOCAINE HCL VISCOUS [Concomitant]
  6. ZEGERID [Concomitant]
  7. TORADOL [Concomitant]
  8. METOCLOPRAMIDE [Suspect]
     Indication: ABDOMINAL PAIN
     Dosage: 10 MG;IV
     Route: 042
     Dates: start: 20041101, end: 20041225
  9. METOCLOPRAMIDE [Suspect]
     Indication: DYSPHAGIA
     Dosage: 10 MG;IV
     Route: 042
     Dates: start: 20041101, end: 20041225
  10. SODIUM CHLORIDE [Concomitant]
  11. HALDOL [Concomitant]
  12. TYLENOL ES [Concomitant]
  13. TOPAMAX [Concomitant]
  14. CLONAZEPAM [Concomitant]
  15. PHENERGAN [Concomitant]
  16. ACIPHEX [Concomitant]
  17. ESTROGENIC SUBSTANCE [Concomitant]
  18. REQUIP [Concomitant]
  19. VISTARIL [Concomitant]
  20. OMEPRAZOLE [Concomitant]
  21. STADOL [Concomitant]
  22. CIPROFLOXACIN [Concomitant]
  23. PREVACID [Concomitant]
  24. GEODAN [Concomitant]
  25. KLONOPIN [Concomitant]
  26. DEPAKOTE [Concomitant]
  27. XANAX [Concomitant]
  28. ZOFRAN [Concomitant]
  29. BENADRYL [Concomitant]

REACTIONS (45)
  - HYPOAESTHESIA [None]
  - MIGRAINE [None]
  - OVARIAN CYST [None]
  - GASTRIC INFECTION [None]
  - ASTHENIA [None]
  - ANXIETY [None]
  - FEELING HOT [None]
  - INTERVERTEBRAL DISC PROTRUSION [None]
  - EMOTIONAL DISORDER [None]
  - DYSPHAGIA [None]
  - NERVOUSNESS [None]
  - NO THERAPEUTIC RESPONSE [None]
  - TARDIVE DYSKINESIA [None]
  - INJURY [None]
  - CERVICOBRACHIAL SYNDROME [None]
  - NAUSEA [None]
  - HELICOBACTER GASTRITIS [None]
  - VOMITING [None]
  - ANAEMIA [None]
  - PELVIC PAIN [None]
  - GASTROENTERITIS [None]
  - INSOMNIA [None]
  - CONCUSSION [None]
  - UTERINE LEIOMYOMA [None]
  - GASTROINTESTINAL SOUNDS ABNORMAL [None]
  - JOINT SWELLING [None]
  - AKATHISIA [None]
  - HEADACHE [None]
  - RESTLESSNESS [None]
  - PAIN IN EXTREMITY [None]
  - ECONOMIC PROBLEM [None]
  - TREMOR [None]
  - ABDOMINAL PAIN LOWER [None]
  - PAIN [None]
  - ADHESION [None]
  - FEELING JITTERY [None]
  - MOVEMENT DISORDER [None]
  - MYALGIA [None]
  - ROAD TRAFFIC ACCIDENT [None]
  - SPINAL OSTEOARTHRITIS [None]
  - DEPRESSION [None]
  - ABDOMINAL TENDERNESS [None]
  - STRESS [None]
  - SERUM FERRITIN DECREASED [None]
  - OEDEMA PERIPHERAL [None]
